FAERS Safety Report 19477791 (Version 1)
Quarter: 2021Q2

REPORT INFORMATION
  Report Type: Spontaneous
  Country: US (occurrence: US)
  Receive Date: 20210630
  Receipt Date: 20210630
  Transmission Date: 20210717
  Serious: No
  Sender: FDA-Public Use
  Company Number: US-KRAMERLABS-2021-US-007976

PATIENT
  Age: 31 Year
  Sex: Male
  Weight: 68.95 kg

DRUGS (1)
  1. NIZORAL A?D [Suspect]
     Active Substance: KETOCONAZOLE
     Indication: DANDRUFF
     Dosage: NICKEL SIZE AMOUNT TO WASH HAIR 2?3 TIMES A WEEK
     Route: 061
     Dates: start: 20210222, end: 20210303

REACTIONS (5)
  - Pruritus [Not Recovered/Not Resolved]
  - Intentional product misuse [Recovered/Resolved]
  - Inappropriate schedule of product administration [Recovered/Resolved]
  - Alopecia [Not Recovered/Not Resolved]
  - Hair disorder [Unknown]

NARRATIVE: CASE EVENT DATE: 20210222
